FAERS Safety Report 7569684-3 (Version None)
Quarter: 2011Q2

REPORT INFORMATION
  Report Type: 
  Country: None (occurrence: None)
  Receive Date: 20110624
  Receipt Date: 20110620
  Transmission Date: 20111010
  Serious: No
  Sender: FDA-Public Use
  Company Number: US-PFIZER INC-2011136061

PATIENT
  Sex: Female
  Weight: 47.619 kg

DRUGS (4)
  1. NAMENDA [Concomitant]
     Dosage: UNK
  2. VANTIN [Suspect]
     Indication: URINARY TRACT INFECTION
     Dosage: 100 MG, 2X/DAY
     Route: 048
     Dates: start: 20110610, end: 20110617
  3. CELEXA [Concomitant]
     Dosage: UNK
  4. HALDOL [Concomitant]
     Dosage: UNK

REACTIONS (1)
  - AGGRESSION [None]
